FAERS Safety Report 20674617 (Version 1)
Quarter: 2022Q2

REPORT INFORMATION
  Report Type: Spontaneous
  Country: US (occurrence: US)
  Receive Date: 20220405
  Receipt Date: 20220405
  Transmission Date: 20220721
  Serious: No
  Sender: FDA-Public Use
  Company Number: US-JNJFOC-20220402063

PATIENT
  Sex: Male

DRUGS (1)
  1. ZYTIGA [Suspect]
     Active Substance: ABIRATERONE ACETATE
     Indication: Product used for unknown indication
     Dosage: 250MG TABLETS TWO TAKEN ONCE DIALY.
     Route: 048
     Dates: end: 20220331

REACTIONS (2)
  - Off label use [Unknown]
  - Incorrect dose administered [Unknown]
